FAERS Safety Report 6159001-8 (Version None)
Quarter: 2009Q2

REPORT INFORMATION
  Report Type: 
  Country: None (occurrence: None)
  Receive Date: 20090417
  Receipt Date: 20090410
  Transmission Date: 20091009
  Serious: Yes (Hospitalization)
  Sender: FDA-Public Use
  Company Number: JP-JNJFOC-20090403544

PATIENT
  Sex: Male
  Weight: 66.5 kg

DRUGS (28)
  1. HALOPERIDOL [Suspect]
     Indication: BIPOLAR I DISORDER
     Route: 042
  2. HALOPERIDOL [Suspect]
     Route: 048
  3. HALOPERIDOL [Suspect]
     Route: 048
  4. DEPAS [Concomitant]
     Route: 065
  5. ROHYPNOL [Concomitant]
     Route: 065
  6. ROHYPNOL [Concomitant]
     Route: 065
  7. ROHYPNOL [Concomitant]
     Route: 065
  8. YOKUKAN-SAN [Concomitant]
     Route: 065
  9. LITHIUM CARBONATE [Concomitant]
     Route: 065
  10. LITHIUM CARBONATE [Concomitant]
     Route: 065
  11. LITHIUM CARBONATE [Concomitant]
     Route: 065
  12. LITHIUM CARBONATE [Concomitant]
     Route: 065
  13. LITHIUM CARBONATE [Concomitant]
     Route: 065
  14. LITHIUM CARBONATE [Concomitant]
     Route: 065
  15. LITHIUM CARBONATE [Concomitant]
     Route: 065
  16. LEVOMEPROMAZINE MALEATE [Concomitant]
     Route: 065
  17. LEVOMEPROMAZINE MALEATE [Concomitant]
     Route: 065
  18. LEVOMEPROMAZINE MALEATE [Concomitant]
     Route: 065
  19. LEVOMEPROMAZINE MALEATE [Concomitant]
     Route: 065
  20. RISPERIDONE [Concomitant]
     Route: 065
  21. RISPERIDONE [Concomitant]
     Route: 065
  22. RISPERIDONE [Concomitant]
     Route: 065
  23. RISPERIDONE [Concomitant]
     Route: 065
  24. RISPERIDONE [Concomitant]
     Route: 065
  25. OLANZAPINE [Concomitant]
     Route: 065
  26. QUETIAPINE FUMARATE [Concomitant]
     Route: 065
  27. QUETIAPINE FUMARATE [Concomitant]
     Route: 065
  28. QUETIAPINE FUMARATE [Concomitant]
     Route: 065

REACTIONS (1)
  - MANIA [None]
